FAERS Safety Report 11330036 (Version 1)
Quarter: 2015Q3

REPORT INFORMATION
  Report Type: Other
  Country: GB (occurrence: GB)
  Receive Date: 20150803
  Receipt Date: 20150803
  Transmission Date: 20151125
  Serious: Yes (Other)
  Sender: FDA-Public Use
  Company Number: GB-TARO PHARMACEUTICALS USA.,INC-2015SUN01736

PATIENT
  Age: 71 Year
  Sex: Male

DRUGS (13)
  1. WARFARIN [Suspect]
     Active Substance: WARFARIN
     Indication: ATRIAL FIBRILLATION
     Dosage: 4 MG, QD
     Route: 048
     Dates: start: 2013
  2. FINASTERIDE. [Interacting]
     Active Substance: FINASTERIDE
     Indication: BENIGN PROSTATIC HYPERPLASIA
     Dosage: 5 MG, QD
     Route: 048
     Dates: start: 201505
  3. BUPRENORPHINE. [Concomitant]
     Active Substance: BUPRENORPHINE
  4. RAMIPRIL. [Concomitant]
     Active Substance: RAMIPRIL
  5. WARFARIN [Interacting]
     Active Substance: WARFARIN
     Dosage: UNK, DOSE INCREASED
     Route: 048
  6. FERROUS SULFATE [Concomitant]
     Active Substance: FERROUS SULFATE\FERROUS SULFATE, DRIED
  7. PRIMIDONE. [Concomitant]
     Active Substance: PRIMIDONE
  8. PARACETAMOL [Concomitant]
     Active Substance: ACETAMINOPHEN
  9. METFORMIN [Concomitant]
     Active Substance: METFORMIN HYDROCHLORIDE
  10. ZOLPIDEM [Concomitant]
     Active Substance: ZOLPIDEM\ZOLPIDEM TARTRATE
  11. SILDENAFIL. [Concomitant]
     Active Substance: SILDENAFIL
  12. GABAPENTIN. [Concomitant]
     Active Substance: GABAPENTIN
  13. MACROGOL [Concomitant]
     Active Substance: POLYETHYLENE GLYCOLS

REACTIONS (2)
  - International normalised ratio decreased [Recovering/Resolving]
  - Drug interaction [Unknown]

NARRATIVE: CASE EVENT DATE: 201505
